FAERS Safety Report 14742043 (Version 2)
Quarter: 2018Q2

REPORT INFORMATION
  Report Type: Spontaneous
  Country: FR (occurrence: FR)
  Receive Date: 20180410
  Receipt Date: 20180425
  Transmission Date: 20180711
  Serious: Yes (Death)
  Sender: FDA-Public Use
  Company Number: FR-PFIZER INC-2018142911

PATIENT
  Age: 54 Year
  Sex: Male
  Weight: 54 kg

DRUGS (23)
  1. FORTUM /00559702/ [Suspect]
     Active Substance: CEFTAZIDIME
     Indication: INFECTION
     Dosage: 1 DF, EVERY 8 HOURS
     Route: 042
     Dates: start: 20180131, end: 20180202
  2. CANCIDAS [Suspect]
     Active Substance: CASPOFUNGIN ACETATE
     Indication: INFECTION
     Dosage: UNK
     Route: 042
     Dates: start: 20180202, end: 20180206
  3. TIENAM [Suspect]
     Active Substance: CILASTATIN SODIUM\IMIPENEM
     Indication: INFECTION
     Dosage: UNK
     Route: 042
     Dates: start: 20180201, end: 20180211
  4. CIFLOX /00697201/ [Suspect]
     Active Substance: CIPROFLOXACIN
     Indication: INFECTION
     Dosage: 1 DF, EVERY 12 HOURS
     Route: 042
     Dates: start: 20180211, end: 20180226
  5. LASILIX /00032601/ [Concomitant]
     Active Substance: FUROSEMIDE
     Dosage: UNK
     Route: 042
     Dates: start: 20180130
  6. ROCEPHINE [Concomitant]
     Active Substance: CEFTRIAXONE SODIUM
     Dosage: 1 G, EVERY 12 HOURS
     Route: 042
     Dates: start: 20180120, end: 20180129
  7. EUPRESSYL /00631802/ [Concomitant]
     Active Substance: URAPIDIL HYDROCHLORIDE
     Dosage: UNK
     Route: 042
     Dates: start: 20180202
  8. VANCOMYCINE [Suspect]
     Active Substance: VANCOMYCIN
     Dosage: UNK
     Route: 042
     Dates: start: 20180130, end: 20180202
  9. AMIKACINE /00391001/ [Suspect]
     Active Substance: AMIKACIN
     Indication: INFECTION
     Dosage: UNK
     Route: 042
     Dates: start: 20180211, end: 20180217
  10. ATROVENT [Concomitant]
     Active Substance: IPRATROPIUM BROMIDE
     Dosage: UNK
     Route: 055
     Dates: start: 20180128
  11. INEXIUM /01479302/ [Concomitant]
     Active Substance: ESOMEPRAZOLE MAGNESIUM
     Dosage: UNK
     Route: 042
  12. RAMIPRIL. [Concomitant]
     Active Substance: RAMIPRIL
     Dosage: UNK
     Route: 048
     Dates: start: 20180206, end: 20180226
  13. CARDENSIEL [Concomitant]
     Active Substance: BISOPROLOL FUMARATE
     Dosage: UNK
     Route: 048
     Dates: start: 20180206, end: 20180226
  14. TRIFLUCAN [Suspect]
     Active Substance: FLUCONAZOLE
     Indication: INFECTION
     Dosage: 800 MG, 1X/DAY
     Route: 042
     Dates: start: 20180207, end: 20180213
  15. AXEPIM [Suspect]
     Active Substance: CEFEPIME HYDROCHLORIDE
     Indication: INFECTION
     Dosage: 2 G, 1X/DAY
     Route: 042
     Dates: start: 20180129, end: 20180201
  16. COLIMYCINE /02640401/ [Suspect]
     Active Substance: COLISTIMETHATE SODIUM\PENICILLIN G POTASSIUM
     Indication: INFECTION
     Dosage: UNK
     Dates: start: 20180211, end: 20180226
  17. LOVENOX [Concomitant]
     Active Substance: ENOXAPARIN SODIUM
     Dosage: 1 DF, 1X/DAY
     Route: 058
  18. CATAPRESSAN /00171102/ [Concomitant]
     Active Substance: CLONIDINE HYDROCHLORIDE
     Dosage: UNK
     Route: 042
     Dates: start: 20180206, end: 20180212
  19. INSULINE /01223401/ [Concomitant]
     Active Substance: INSULIN NOS
     Dosage: UNK
     Dates: start: 20180120
  20. FLAGYL [Suspect]
     Active Substance: METRONIDAZOLE\METRONIDAZOLE HYDROCHLORIDE
     Indication: INFECTION
     Dosage: 500 MG, EVERY 8 HOURS
     Route: 042
     Dates: start: 20180120, end: 20180126
  21. SUFENTANIL [Concomitant]
     Active Substance: SUFENTANIL
     Dosage: UNK
     Route: 042
     Dates: start: 20180120
  22. PERFALGAN [Concomitant]
     Active Substance: ACETAMINOPHEN
     Dosage: UNK
     Route: 042
     Dates: start: 20180123
  23. ATARAX [Concomitant]
     Active Substance: HYDROXYZINE HYDROCHLORIDE
     Dosage: UNK
     Route: 048
     Dates: start: 20180212, end: 20180214

REACTIONS (1)
  - Toxic epidermal necrolysis [Fatal]

NARRATIVE: CASE EVENT DATE: 20180212
